FAERS Safety Report 6600817-9 (Version None)
Quarter: 2010Q1

REPORT INFORMATION
  Report Type: 
  Country: None (occurrence: None)
  Receive Date: 20100223
  Receipt Date: 20100223
  Transmission Date: 20100710
  Serious: Yes (Disabling)
  Sender: FDA-Public Use
  Company Number: None

PATIENT
  Age: 47 Year
  Sex: Male
  Weight: 122.4712 kg

DRUGS (2)
  1. GEMFIBROZIL [Suspect]
     Indication: BLOOD TRIGLYCERIDES
     Dosage: 2 PER DAY PO
     Route: 048
     Dates: start: 20070101, end: 20100217
  2. SIMVASTATIN [Suspect]
     Indication: BLOOD CHOLESTEROL
     Dosage: 1 HALF AT BEDTIME PO
     Route: 048
     Dates: start: 20070101, end: 20100217

REACTIONS (2)
  - MYALGIA [None]
  - VISION BLURRED [None]
